FAERS Safety Report 9500866 (Version 1)
Quarter: 2013Q1

REPORT INFORMATION
  Report Type: Spontaneous
  Country: US (occurrence: None)
  Receive Date: 20130107
  Receipt Date: 20130107
  Transmission Date: 20140127
  Serious: No
  Sender: FDA-Public Use
  Company Number: PHEH2012US020173

PATIENT
  Age: 54 Year
  Sex: Female
  Weight: 58.5 kg

DRUGS (2)
  1. GILENYA [Suspect]
     Indication: MULTIPLE SCLEROSIS
     Route: 048
     Dates: start: 20120112
  2. OXYCODONE (OXYCODONE) [Concomitant]

REACTIONS (4)
  - Musculoskeletal stiffness [None]
  - Nausea [None]
  - Muscle spasms [None]
  - Migraine [None]
